FAERS Safety Report 6187401-9 (Version None)
Quarter: 2009Q2

REPORT INFORMATION
  Report Type: 
  Country: None (occurrence: None)
  Receive Date: 20090512
  Receipt Date: 20090504
  Transmission Date: 20091009
  Serious: Yes (Hospitalization)
  Sender: FDA-Public Use
  Company Number: B0573546A

PATIENT
  Sex: Female

DRUGS (5)
  1. LANOXIN [Suspect]
     Indication: ATRIAL FIBRILLATION
     Dosage: 250MG PER DAY
     Route: 048
  2. LASIX [Concomitant]
     Indication: CARDIAC FAILURE
     Dosage: 40MG TWICE PER DAY
     Route: 048
  3. OMEPRAZOLE [Concomitant]
     Dosage: 20MG PER DAY
     Route: 048
  4. ASAFLOW [Concomitant]
     Indication: PROPHYLAXIS
     Dosage: 80MG PER DAY
     Route: 048
  5. O2 [Concomitant]
     Indication: OXYGEN SUPPLEMENTATION

REACTIONS (7)
  - ABDOMINAL DISTENSION [None]
  - ABDOMINAL PAIN [None]
  - ANOREXIA [None]
  - BRADYCARDIA [None]
  - DECREASED APPETITE [None]
  - FATIGUE [None]
  - SOMNOLENCE [None]
